FAERS Safety Report 7607241 (Version 2)
Quarter: 2013Q3

REPORT INFORMATION
  Report Type: Report from Study
  Country: US (occurrence: US)
  Receive Date: 20100927
  Receipt Date: 20130705
  Transmission Date: 20140515
  Serious: Yes (Hospitalization)
  Sender: FDA-Public Use
  Company Number: US-BRISTOL-MYERS SQUIBB COMPANY-15300791

PATIENT
  Age: 87 Year
  Sex: Male
  Weight: 73.3 kg

DRUGS (3)
  1. ERBITUX [Suspect]
     Indication: OESOPHAGEAL ADENOCARCINOMA
     Dosage: LAST DOSE ON:03AUG2010?400MG/M2;250MG/M2 ON DAY 8,15,22,29,36
     Dates: start: 20100629, end: 20100803
  2. CISPLATIN [Suspect]
     Indication: OESOPHAGEAL ADENOCARCINOMA
     Dosage: LAST DOSE ON:03AUG2010?25MG/M2 ON DAY 1,8,15,22,29,36
     Dates: start: 20100629, end: 20100803
  3. TAXOL [Suspect]
     Indication: OESOPHAGEAL ADENOCARCINOMA
     Dosage: LAST DOSE ON:03AUG2010?50MG/M2 ON DAY 1,8,15,22,29,36
     Dates: start: 20100629, end: 20100803

REACTIONS (5)
  - Dysphagia [Recovering/Resolving]
  - Diarrhoea [Recovered/Resolved]
  - Dermatitis acneiform [Recovered/Resolved]
  - Anaemia [Unknown]
  - Gastric haemorrhage [Recovered/Resolved]
